FAERS Safety Report 7713602-1 (Version None)
Quarter: 2011Q3

REPORT INFORMATION
  Report Type: 
  Country: None (occurrence: None)
  Receive Date: 20110826
  Receipt Date: 20110822
  Transmission Date: 20111222
  Serious: Yes (Death, Other)
  Sender: FDA-Public Use
  Company Number: US-ELI_LILLY_AND_COMPANY-US201107004386

PATIENT
  Sex: Male
  Weight: 106.58 kg

DRUGS (1)
  1. CIALIS [Suspect]
     Indication: ERECTILE DYSFUNCTION
     Dosage: 20 MG, UNK
     Dates: start: 20040101, end: 20070101

REACTIONS (2)
  - CARDIAC FAILURE CONGESTIVE [None]
  - RENAL FAILURE [None]
